FAERS Safety Report 5921627-1 (Version None)
Quarter: 2008Q4

REPORT INFORMATION
  Report Type: 
  Country: None (occurrence: None)
  Receive Date: 20081016
  Receipt Date: 20081016
  Transmission Date: 20090506
  Serious: Yes (Hospitalization)
  Sender: FDA-Public Use
  Company Number: None

PATIENT
  Age: 50 Year
  Sex: Male
  Weight: 65.5 kg

DRUGS (3)
  1. ALLOPURINOL 100MG TAB [Suspect]
     Indication: GOUT
     Dosage: 100 MG ONCE DAILY ORAL
     Route: 048
     Dates: start: 20080701, end: 20080819
  2. LIPITOR [Concomitant]
  3. AVAPRO [Concomitant]

REACTIONS (7)
  - ALANINE AMINOTRANSFERASE INCREASED [None]
  - EOSINOPHILIA [None]
  - MYALGIA [None]
  - PYREXIA [None]
  - RASH PRURITIC [None]
  - SWELLING FACE [None]
  - TRANSAMINASES INCREASED [None]
